FAERS Safety Report 8122920-7 (Version None)
Quarter: 2012Q1

REPORT INFORMATION
  Report Type: 
  Country: None (occurrence: None)
  Receive Date: 20120208
  Receipt Date: 20120124
  Transmission Date: 20120608
  Serious: Yes (Life-Threatening, Hospitalization)
  Sender: FDA-Public Use
  Company Number: PHHY2012FR010136

PATIENT
  Age: 68 Year
  Sex: Female

DRUGS (4)
  1. FLUOROURACIL [Concomitant]
     Dosage: 500 MG/M2, UNK
  2. DOCETAXEL [Suspect]
     Dosage: UNK
     Route: 041
     Dates: start: 20111209, end: 20111209
  3. CYCLOPHOSPHAMIDE [Concomitant]
     Dosage: 500 MG/M2, UNK
  4. EPIRUBICIN [Concomitant]
     Dosage: 100 MG/M2, UNK

REACTIONS (7)
  - ABDOMINAL PAIN [None]
  - MUCOSAL INFLAMMATION [None]
  - DIARRHOEA [None]
  - MYALGIA [None]
  - AGRANULOCYTOSIS [None]
  - MALAISE [None]
  - OEDEMA [None]
